FAERS Safety Report 6470834-0 (Version None)
Quarter: 2009Q4

REPORT INFORMATION
  Report Type: 
  Country: None (occurrence: None)
  Receive Date: 20091203
  Receipt Date: 20080122
  Transmission Date: 20100525
  Serious: Yes (Hospitalization, Other)
  Sender: FDA-Public Use
  Company Number: US-ELI_LILLY_AND_COMPANY-US200801002461

PATIENT
  Sex: Male

DRUGS (1)
  1. FORTEO [Suspect]
     Indication: OSTEOPOROSIS
     Route: 058
     Dates: start: 20070801

REACTIONS (6)
  - CEREBROVASCULAR ACCIDENT [None]
  - COLONIC POLYP [None]
  - DIARRHOEA [None]
  - GASTRIC CANCER [None]
  - GASTROINTESTINAL INFECTION [None]
  - ULCER HAEMORRHAGE [None]
